FAERS Safety Report 6010337-0 (Version None)
Quarter: 2008Q4

REPORT INFORMATION
  Report Type: 
  Country: None (occurrence: None)
  Receive Date: 20081218
  Receipt Date: 20080806
  Transmission Date: 20090506
  Serious: No
  Sender: FDA-Public Use
  Company Number: A0742544A

PATIENT
  Age: 5 Month
  Sex: Male

DRUGS (1)
  1. FLONASE [Suspect]
     Indication: LARYNGOMALACIA
     Route: 045
     Dates: start: 20080806

REACTIONS (5)
  - CRYING [None]
  - INTENTIONAL DRUG MISUSE [None]
  - IRRITABILITY [None]
  - NASAL DISCOMFORT [None]
  - PRODUCT QUALITY ISSUE [None]
